FAERS Safety Report 6750940-3 (Version None)
Quarter: 2010Q2

REPORT INFORMATION
  Report Type: 
  Country: None (occurrence: None)
  Receive Date: 20100528
  Receipt Date: 20081003
  Transmission Date: 20101027
  Serious: Yes (Death)
  Sender: FDA-Public Use
  Company Number: 2009-2953

PATIENT
  Age: 47 Year
  Sex: Male

DRUGS (1)
  1. APO-GO (APOMORPHINE HYDROCHLORIDE) (APOMORPHINE HYDROCHLORIDE) [Suspect]
     Indication: DRUG USE FOR UNKNOWN INDICATION
     Dosage: SUBCUTANEOUS
     Route: 058

REACTIONS (2)
  - CARDIAC ARREST [None]
  - SUDDEN DEATH [None]
